FAERS Safety Report 8574557-3 (Version None)
Quarter: 2012Q3

REPORT INFORMATION
  Report Type: 
  Country: None (occurrence: None)
  Receive Date: 20120806
  Receipt Date: 20120724
  Transmission Date: 20120928
  Serious: Yes (Other)
  Sender: FDA-Public Use
  Company Number: CHPA2012US010148

PATIENT
  Sex: Male

DRUGS (3)
  1. EXCEDRIN (MIGRAINE) [Concomitant]
     Dosage: 3 DF, QHS
     Route: 048
  2. EXCEDRIN EXTRA STRENGTH TABLETS [Suspect]
     Indication: PROPHYLAXIS
     Dosage: 3 DF, QHS
     Route: 048
  3. EXCEDRIN (MIGRAINE) [Suspect]
     Indication: PROPHYLAXIS
     Dosage: 3 DF, QHS
     Route: 048

REACTIONS (8)
  - OFF LABEL USE [None]
  - THERAPEUTIC RESPONSE UNEXPECTED [None]
  - HEADACHE [None]
  - VERTIGO [None]
  - DIZZINESS [None]
  - FEELING ABNORMAL [None]
  - BALANCE DISORDER [None]
  - INCORRECT DRUG ADMINISTRATION DURATION [None]
